FAERS Safety Report 6111026-4 (Version None)
Quarter: 2009Q1

REPORT INFORMATION
  Report Type: 
  Country: None (occurrence: None)
  Receive Date: 20090311
  Receipt Date: 20090225
  Transmission Date: 20090719
  Serious: Yes (Hospitalization)
  Sender: FDA-Public Use
  Company Number: JP-ELI_LILLY_AND_COMPANY-JP200902003471

PATIENT
  Sex: Female
  Weight: 71 kg

DRUGS (16)
  1. EXENATIDE [Suspect]
     Indication: TYPE 2 DIABETES MELLITUS
     Dosage: 5 UG, 2/D
     Route: 058
     Dates: start: 20080328, end: 20090204
  2. AMARYL [Concomitant]
     Indication: DIABETES MELLITUS
     Dosage: 1.5 MG, DAILY (1/D)
     Route: 048
     Dates: start: 20080522
  3. METFORMIN HCL [Concomitant]
     Indication: DIABETES MELLITUS
     Dosage: 750 MG, DAILY (1/D)
     Route: 048
     Dates: start: 20060810
  4. BLOPRESS [Concomitant]
     Indication: HYPERTENSION
     Dosage: 4 MG, DAILY (1/D)
     Route: 048
     Dates: start: 20061221
  5. AMLODIPINE [Concomitant]
     Dosage: 2.5 MG, DAILY (1/D)
     Route: 048
     Dates: start: 20071129
  6. SOLANAX [Concomitant]
     Indication: DEPRESSION
     Dosage: 0.6 MG, DAILY (1/D)
     Route: 048
  7. DOGMATYL [Concomitant]
     Indication: DEPRESSION
     Dosage: 150 MG, DAILY (1/D)
     Route: 048
  8. BIPERIDEN HYDROCHLORIDE TAB [Concomitant]
     Indication: DEPRESSION
     Dosage: 3 MG, DAILY (1/D)
     Route: 048
  9. FLUVOXAMINE MALEATE [Concomitant]
     Indication: DEPRESSION
     Dosage: 150 MG, DAILY (1/D)
     Route: 048
  10. TOLEDOMIN [Concomitant]
     Indication: DEPRESSION
     Dosage: 75 MG, DAILY (1/D)
     Route: 048
  11. AMOBAN [Concomitant]
     Indication: INSOMNIA
     Dosage: 20 MG, DAILY (1/D)
     Route: 048
  12. RHYTHMY [Concomitant]
     Indication: INSOMNIA
     Dosage: 2 MG, DAILY (1/D)
     Route: 048
  13. HIRNAMIN [Concomitant]
     Indication: DEPRESSION
     Dosage: 0.01 G, DAILY (1/D)
     Route: 048
  14. AKINETON /00079501/ [Concomitant]
     Indication: DEPRESSION
     Dosage: 0.1 G, DAILY (1/D)
     Route: 048
  15. PRIMPERAN /00041901/ [Concomitant]
     Indication: DYSPEPSIA
     Dosage: 15 MG, DAILY (1/D)
     Route: 048
     Dates: start: 20090130
  16. HUSCODE [Concomitant]
     Indication: NASOPHARYNGITIS
     Dosage: 27 MG, DAILY (1/D)
     Route: 048
     Dates: start: 20090130

REACTIONS (2)
  - PNEUMONIA [None]
  - PO2 DECREASED [None]
